FAERS Safety Report 8543124-X (Version None)
Quarter: 2012Q3

REPORT INFORMATION
  Report Type: 
  Country: None (occurrence: None)
  Receive Date: 20120727
  Receipt Date: 20120116
  Transmission Date: 20120928
  Serious: No
  Sender: FDA-Public Use
  Company Number: US-MYLANLABS-2012S1001302

PATIENT
  Age: 57 Year
  Sex: Female

DRUGS (1)
  1. LEVOTHYROXINE SODIUM [Suspect]
     Indication: HYPOTHYROIDISM
     Route: 048
     Dates: start: 20100101

REACTIONS (4)
  - WEIGHT INCREASED [None]
  - DRY SKIN [None]
  - ALOPECIA [None]
  - FEELING ABNORMAL [None]
